FAERS Safety Report 8466195-8 (Version None)
Quarter: 2012Q2

REPORT INFORMATION
  Report Type: 
  Country: None (occurrence: None)
  Receive Date: 20120626
  Receipt Date: 20120620
  Transmission Date: 20120825
  Serious: Yes (Life-Threatening)
  Sender: FDA-Public Use
  Company Number: JP-ELI_LILLY_AND_COMPANY-JP201206002469

PATIENT
  Sex: Female

DRUGS (2)
  1. OPALMON [Concomitant]
     Dosage: 5 UG, TID
     Route: 048
     Dates: start: 20110928
  2. FORTEO [Suspect]
     Indication: OSTEOPOROSIS
     Dosage: 20 UG, QD
     Route: 058
     Dates: start: 20110608, end: 20120606

REACTIONS (1)
  - WHITE BLOOD CELL COUNT DECREASED [None]
